FAERS Safety Report 9603688 (Version 3)
Quarter: 2014Q1

REPORT INFORMATION
  Report Type: Report from Study
  Country: US (occurrence: US)
  Receive Date: 20131007
  Receipt Date: 20140116
  Transmission Date: 20141002
  Serious: Yes (Other)
  Sender: FDA-Public Use
  Company Number: US-ABBVIE-13P-163-1152628-00

PATIENT
  Age: 57 Year
  Sex: Female
  Weight: 65.38 kg

DRUGS (4)
  1. HUMIRA [Suspect]
     Indication: PSORIATIC ARTHROPATHY
     Dates: start: 2002
  2. HUMIRA [Suspect]
     Route: 058
     Dates: start: 20061130
  3. HUMIRA [Suspect]
     Route: 058
     Dates: start: 200908
  4. MTX [Concomitant]
     Indication: PRODUCT USED FOR UNKNOWN INDICATION
     Route: 048
     Dates: start: 20010824

REACTIONS (8)
  - Cerebrovascular accident [Recovered/Resolved with Sequelae]
  - Hypoaesthesia [Not Recovered/Not Resolved]
  - Hypoaesthesia oral [Not Recovered/Not Resolved]
  - Arthritis [Not Recovered/Not Resolved]
  - Drug dose omission [Unknown]
  - Abdominal pain lower [Recovered/Resolved]
  - Urinary tract infection [Recovered/Resolved]
  - Brain mass [Unknown]
